FAERS Safety Report 7596181-1 (Version None)
Quarter: 2011Q3

REPORT INFORMATION
  Report Type: 
  Country: None (occurrence: None)
  Receive Date: 20110707
  Receipt Date: 20110626
  Transmission Date: 20111222
  Serious: Yes (Other)
  Sender: FDA-Public Use
  Company Number: FR-ALEXION-A201100993

PATIENT
  Sex: Female

DRUGS (3)
  1. SOLIRIS [Suspect]
     Indication: HAEMOLYTIC URAEMIC SYNDROME
     Dosage: 900 MG, UNK
     Route: 042
     Dates: start: 20110624
  2. MENCEVAX [Concomitant]
     Indication: IMMUNISATION
     Dosage: UNK
     Dates: start: 20110624, end: 20110624
  3. ROVAMYCINE [Concomitant]
     Indication: ANTIBIOTIC PROPHYLAXIS
     Dosage: UNK
     Route: 042
     Dates: start: 20110624

REACTIONS (2)
  - CONVULSION [None]
  - SEPTIC SHOCK [None]
